FAERS Safety Report 22638246 (Version 4)
Quarter: 2023Q2

REPORT INFORMATION
  Report Type: Report from Study
  Country: US (occurrence: US)
  Receive Date: 20230626
  Receipt Date: 20230629
  Transmission Date: 20230722
  Serious: No
  Sender: FDA-Public Use
  Company Number: US-002147023-NVSC2023US143256

PATIENT
  Sex: Female

DRUGS (16)
  1. COSENTYX [Suspect]
     Active Substance: SECUKINUMAB
     Indication: Psoriasis
     Dosage: UNK
     Route: 065
  2. COSENTYX [Suspect]
     Active Substance: SECUKINUMAB
     Indication: Psoriatic arthropathy
  3. TRIAMCINOLONE [Suspect]
     Active Substance: TRIAMCINOLONE
     Indication: Psoriasis
     Dosage: UNK
     Route: 065
  4. TRIAMCINOLONE [Suspect]
     Active Substance: TRIAMCINOLONE
     Indication: Psoriatic arthropathy
  5. VASELINE PURE [Suspect]
     Active Substance: PETROLATUM
     Indication: Psoriasis
     Dosage: UNK
     Route: 065
  6. VASELINE PURE [Suspect]
     Active Substance: PETROLATUM
     Indication: Psoriatic arthropathy
  7. CLOBETASOL [Suspect]
     Active Substance: CLOBETASOL
     Indication: Psoriasis
     Dosage: UNK
     Route: 065
  8. CLOBETASOL [Suspect]
     Active Substance: CLOBETASOL
     Indication: Psoriatic arthropathy
  9. BACLOFEN [Suspect]
     Active Substance: BACLOFEN
     Indication: Psoriasis
     Dosage: UNK
     Route: 065
  10. BACLOFEN [Suspect]
     Active Substance: BACLOFEN
     Indication: Psoriatic arthropathy
  11. SIMVASTATIN [Suspect]
     Active Substance: SIMVASTATIN
     Indication: Psoriasis
     Dosage: UNK
     Route: 065
  12. SIMVASTATIN [Suspect]
     Active Substance: SIMVASTATIN
     Indication: Psoriatic arthropathy
  13. WELLBUTRIN SR [Suspect]
     Active Substance: BUPROPION HYDROCHLORIDE
     Indication: Psoriasis
     Dosage: UNK
     Route: 065
  14. WELLBUTRIN SR [Suspect]
     Active Substance: BUPROPION HYDROCHLORIDE
     Indication: Psoriatic arthropathy
  15. ACITRETIN [Suspect]
     Active Substance: ACITRETIN
     Indication: Psoriasis
     Dosage: UNK
     Route: 065
  16. ACITRETIN [Suspect]
     Active Substance: ACITRETIN
     Indication: Psoriatic arthropathy

REACTIONS (10)
  - Therapeutic product effect incomplete [Unknown]
  - Skin lesion [Unknown]
  - Arthralgia [Unknown]
  - Rebound psoriasis [Unknown]
  - Actinic keratosis [Unknown]
  - Macule [Unknown]
  - Papule [Unknown]
  - Erythema [Unknown]
  - Skin exfoliation [Unknown]
  - Treatment failure [Unknown]
